FAERS Safety Report 7781470-8 (Version None)
Quarter: 2011Q3

REPORT INFORMATION
  Report Type: 
  Country: None (occurrence: None)
  Receive Date: 20110923
  Receipt Date: 20110908
  Transmission Date: 20111222
  Serious: Yes (Other)
  Sender: FDA-Public Use
  Company Number: AUR-APL-2011-05008

PATIENT
  Age: 79 Year
  Sex: Female

DRUGS (6)
  1. MIRTAZAPINE [Suspect]
     Indication: PRODUCT USED FOR UNKNOWN INDICATION
  2. SIMVASTATIN [Concomitant]
  3. CITALOPRAM HYDROBROMIDE [Suspect]
     Indication: PRODUCT USED FOR UNKNOWN INDICATION
     Dosage: 20 MG (10 MG, 2 IN 1 D), 10 MG (10 MG 1 IN 1 D),
     Dates: end: 20110716
  4. CITALOPRAM HYDROBROMIDE [Suspect]
     Indication: PRODUCT USED FOR UNKNOWN INDICATION
     Dosage: 20 MG (10 MG, 2 IN 1 D), 10 MG (10 MG 1 IN 1 D),
     Dates: end: 20110608
  5. CANDESARTAN CILEXETIL [Concomitant]
  6. FUROSEMIDE [Concomitant]

REACTIONS (8)
  - HYPOTENSION [None]
  - NIGHTMARE [None]
  - HAND FRACTURE [None]
  - BLOOD PRESSURE FLUCTUATION [None]
  - FALL [None]
  - CIRCULATORY COLLAPSE [None]
  - ANXIETY [None]
  - PALPITATIONS [None]
